FAERS Safety Report 5085814-X (Version None)
Quarter: 2006Q3

REPORT INFORMATION
  Report Type: 
  Country: None (occurrence: None)
  Receive Date: 20060817
  Receipt Date: 20060807
  Transmission Date: 20061208
  Serious: Yes (Death, Hospitalization)
  Sender: FDA-Public Use
  Company Number: 163-21880-06080227

PATIENT
  Age: 60 Year
  Sex: Male
  Weight: 145.151 kg

DRUGS (2)
  1. REVLIMID [Suspect]
     Indication: MYELODYSPLASTIC SYNDROME
     Dosage: ORAL
     Route: 048
     Dates: start: 20060710, end: 20060101
  2. UNSPECIFIED FLUID MEDICATION [Concomitant]

REACTIONS (3)
  - BLOOD DISORDER [None]
  - HEPATIC FAILURE [None]
  - RENAL FAILURE [None]
